FAERS Safety Report 8156866 (Version 1)
Quarter: 2020Q3

REPORT INFORMATION
  Report Type: Report from Study
  Country: AU (occurrence: AU)
  Receive Date: 20110926
  Receipt Date: 20110926
  Transmission Date: 20201104
  Serious: Yes (Hospitalization)
  Sender: FDA-Public Use
  Company Number: AU-JNJFOC-20091200979

PATIENT
  Age: 59 Year
  Sex: Male
  Weight: 95.8 kg

DRUGS (8)
  1. RIVAROXABAN [Suspect]
     Active Substance: RIVAROXABAN
     Route: 048
  2. RIVAROXABAN [Suspect]
     Active Substance: RIVAROXABAN
     Indication: ACUTE CORONARY SYNDROME
     Route: 048
     Dates: start: 20090923, end: 20091118
  3. ASPIRIN. [Concomitant]
     Active Substance: ASPIRIN
     Indication: ACUTE CORONARY SYNDROME
     Route: 048
  4. CANDESARTAN. [Concomitant]
     Active Substance: CANDESARTAN
     Indication: ILL-DEFINED DISORDER
  5. PANTOPRAZOLE [Concomitant]
     Active Substance: PANTOPRAZOLE
     Indication: ILL-DEFINED DISORDER
  6. METOPROLOL. [Concomitant]
     Active Substance: METOPROLOL
     Indication: ILL-DEFINED DISORDER
  7. CLOPIDOGREL [Concomitant]
     Active Substance: CLOPIDOGREL BISULFATE
     Indication: ACUTE CORONARY SYNDROME
     Route: 048
  8. ATORVASTATIN [Concomitant]
     Active Substance: ATORVASTATIN
     Indication: ILL-DEFINED DISORDER

REACTIONS (1)
  - Vascular pseudoaneurysm [Recovered/Resolved]

NARRATIVE: CASE EVENT DATE: 20090923
